FAERS Safety Report 13649942 (Version 2)
Quarter: 2017Q2

REPORT INFORMATION
  Report Type: Spontaneous
  Country: JP (occurrence: JP)
  Receive Date: 20170614
  Receipt Date: 20170622
  Transmission Date: 20170830
  Serious: Yes (Hospitalization, Other)
  Sender: FDA-Public Use
  Company Number: JP-ROCHE-1950123

PATIENT
  Age: 68 Year
  Sex: Female

DRUGS (4)
  1. AVASTIN [Suspect]
     Active Substance: BEVACIZUMAB
     Indication: BREAST CANCER
     Dosage: TREATMENT LINE: 1ST LINE?TREATMENT CYCLE OF THIS MEDICINE NUMBER: 1
     Route: 041
     Dates: start: 201705, end: 201706
  2. DEPAS [Concomitant]
     Active Substance: ETIZOLAM
     Indication: DEPRESSION
     Dosage: DOSAGE IS UNCERTAIN.
     Route: 065
  3. PACLITAXEL. [Concomitant]
     Active Substance: PACLITAXEL
     Indication: BREAST CANCER
     Route: 041
     Dates: start: 201705, end: 201706
  4. PAXIL [Concomitant]
     Active Substance: PAROXETINE HYDROCHLORIDE
     Indication: DEPRESSION
     Dosage: DOSAGE IS UNCERTAIN.
     Route: 065

REACTIONS (5)
  - Haematemesis [Recovering/Resolving]
  - Altered state of consciousness [Recovering/Resolving]
  - Melaena [Unknown]
  - Speech disorder [Unknown]
  - Streptococcal infection [Unknown]

NARRATIVE: CASE EVENT DATE: 20170604
